FAERS Safety Report 5489470-8 (Version None)
Quarter: 2007Q4

REPORT INFORMATION
  Report Type: 
  Country: None (occurrence: None)
  Receive Date: 20071018
  Receipt Date: 20071017
  Transmission Date: 20080405
  Serious: Yes (Hospitalization)
  Sender: FDA-Public Use
  Company Number: A0688232A

PATIENT
  Age: 53 Year
  Sex: Female

DRUGS (2)
  1. ALLI [Suspect]
     Dates: start: 20070901, end: 20071004
  2. ATACAND [Concomitant]

REACTIONS (8)
  - ABDOMINAL PAIN UPPER [None]
  - ASTHENIA [None]
  - BLOOD PRESSURE INCREASED [None]
  - CHEST PAIN [None]
  - FEAR [None]
  - HYPOAESTHESIA [None]
  - PAIN IN EXTREMITY [None]
  - PHARMACEUTICAL PRODUCT COMPLAINT [None]
